FAERS Safety Report 4612617-X (Version None)
Quarter: 2005Q1

REPORT INFORMATION
  Report Type: 
  Country: None (occurrence: None)
  Receive Date: 20050316
  Receipt Date: 20050316
  Transmission Date: 20050727
  Serious: Yes (Hospitalization)
  Sender: FDA-Public Use
  Company Number: None

PATIENT
  Age: 47 Year
  Sex: Male
  Weight: 93.7 kg

DRUGS (13)
  1. WARFARIN [Suspect]
     Indication: MITRAL VALVE DISEASE
     Dosage: VARIOUS, VARIOUS, ORAL
     Route: 048
  2. LANOXIN [Concomitant]
  3. FUROSEMIDE [Concomitant]
  4. LISINOPRIL [Concomitant]
  5. OMEPRAZOLE [Concomitant]
  6. SPIRONOLACTONE 25MG TAB [Concomitant]
  7. FLUTICASONE PROP 50MGC 120D NASAL INHL [Concomitant]
  8. FERROUS SO4 325MG TAB UD [Concomitant]
  9. QUETIAPINE FUMARATE 100MG TAB [Concomitant]
  10. GABAPENTIN [Concomitant]
  11. ALOH/MGOH/SIMTH XTRA STRENGTH SUSP [Concomitant]
  12. PSYLLIUM ORAL PWD [Concomitant]
  13. DM 10/GUAIFENESIN 100MG/5ML SYRUP [Concomitant]

REACTIONS (1)
  - INTERNATIONAL NORMALISED RATIO INCREASED [None]
